FAERS Safety Report 7594860-3 (Version None)
Quarter: 2011Q2

REPORT INFORMATION
  Report Type: 
  Country: None (occurrence: None)
  Receive Date: 20110615
  Receipt Date: 20101103
  Transmission Date: 20111010
  Serious: Yes (Hospitalization)
  Sender: FDA-Public Use
  Company Number: WAES 1011USA00411

PATIENT
  Age: 68 Year
  Sex: Male

DRUGS (4)
  1. LANTUS [Suspect]
     Indication: INSULIN-REQUIRING TYPE 2 DIABETES MELLITUS
     Dosage: 78 UNITS/DAILY/SC
     Route: 058
     Dates: start: 20060101
  2. PRINIVIL [Suspect]
     Dosage: PO
     Route: 048
  3. COZAAR [Suspect]
     Dosage: PO
     Route: 048
  4. ATENOLOL [Concomitant]

REACTIONS (2)
  - COUGH [None]
  - BLOOD POTASSIUM INCREASED [None]
